FAERS Safety Report 7812550-6 (Version None)
Quarter: 2011Q4

REPORT INFORMATION
  Report Type: 
  Country: None (occurrence: None)
  Receive Date: 20111013
  Receipt Date: 20110624
  Transmission Date: 20120403
  Serious: No
  Sender: FDA-Public Use
  Company Number: US-NOVEN-11US002690

PATIENT
  Sex: Female

DRUGS (2)
  1. FENTANYL [Suspect]
     Indication: PRODUCT USED FOR UNKNOWN INDICATION
     Dosage: 25 UG, 1 PATCH Q72H
     Route: 062
     Dates: start: 20110531
  2. FENTANYL [Suspect]
     Dosage: UNK
     Route: 062
     Dates: start: 20100601, end: 20110530

REACTIONS (3)
  - DRUG DOSE OMISSION [None]
  - DRUG ADMINISTRATION ERROR [None]
  - PRODUCT QUALITY ISSUE [None]
